FAERS Safety Report 5376318-5 (Version None)
Quarter: 2007Q2

REPORT INFORMATION
  Report Type: 
  Country: None (occurrence: None)
  Receive Date: 20070627
  Receipt Date: 20070627
  Transmission Date: 20071010
  Serious: No
  Sender: FDA-Public Use
  Company Number: None

PATIENT
  Age: 17 Year
  Sex: Female
  Weight: 60.6 kg

DRUGS (1)
  1. OPTIMARK [Suspect]
     Dosage: 16 ML/ONCE/ANTECUBITAL
     Dates: start: 20061214

REACTIONS (2)
  - NAUSEA [None]
  - URTICARIA [None]
